FAERS Safety Report 8119083-0 (Version None)
Quarter: 2012Q1

REPORT INFORMATION
  Report Type: 
  Country: None (occurrence: None)
  Receive Date: 20120207
  Receipt Date: 20120203
  Transmission Date: 20120608
  Serious: Yes (Other)
  Sender: FDA-Public Use
  Company Number: CA-ROCHE-1037283

PATIENT
  Sex: Male
  Weight: 75.364 kg

DRUGS (6)
  1. DEXAMETHASONE [Concomitant]
  2. PANTOPRAZOLE [Concomitant]
  3. SENOKOT [Concomitant]
  4. METHYLPREDNISOLONE [Concomitant]
     Route: 042
     Dates: start: 20120120, end: 20120120
  5. ZOPICLONE [Concomitant]
  6. AVASTIN [Suspect]
     Indication: GLIOBLASTOMA
     Route: 042
     Dates: start: 20110801

REACTIONS (1)
  - APHASIA [None]
